FAERS Safety Report 4755030-7 (Version None)
Quarter: 2005Q3

REPORT INFORMATION
  Report Type: 
  Country: None (occurrence: None)
  Receive Date: 20050829
  Receipt Date: 20050818
  Transmission Date: 20060218
  Serious: Yes (Disabling, Other)
  Sender: FDA-Public Use
  Company Number: US-BRISTOL-MYERS SQUIBB COMPANY-13083225

PATIENT
  Sex: Male

DRUGS (1)
  1. VIDEX EC [Suspect]

REACTIONS (3)
  - DRUG INTERACTION [None]
  - NEUROPATHY PERIPHERAL [None]
  - PANCREATITIS [None]
